FAERS Safety Report 9601387 (Version 6)
Quarter: 2014Q3

REPORT INFORMATION
  Report Type: Report from Study
  Country: US (occurrence: US)
  Receive Date: 20131007
  Receipt Date: 20140820
  Transmission Date: 20150326
  Serious: Yes (Hospitalization)
  Sender: FDA-Public Use
  Company Number: US-BIOGENIDEC-2013BI095998

PATIENT
  Age: 50 Year
  Sex: Female

DRUGS (1)
  1. TYSABRI [Suspect]
     Active Substance: NATALIZUMAB
     Indication: MULTIPLE SCLEROSIS
     Route: 042
     Dates: start: 20110823

REACTIONS (15)
  - Gait disturbance [Unknown]
  - Dysarthria [Not Recovered/Not Resolved]
  - Dyscalculia [Not Recovered/Not Resolved]
  - Postoperative wound infection [Recovered/Resolved]
  - Hypoaesthesia oral [Recovered/Resolved]
  - Vision blurred [Recovered/Resolved]
  - Mental impairment [Not Recovered/Not Resolved]
  - Balance disorder [Not Recovered/Not Resolved]
  - Depression [Unknown]
  - Paraesthesia [Not Recovered/Not Resolved]
  - Pain [Recovered/Resolved]
  - Emotional disorder [Not Recovered/Not Resolved]
  - Back disorder [Recovered/Resolved]
  - Bone graft [Recovered/Resolved]
  - Hypoaesthesia [Recovered/Resolved]

NARRATIVE: CASE EVENT DATE: 2013
